FAERS Safety Report 17209469 (Version 1)
Quarter: 2019Q4

REPORT INFORMATION
  Report Type: Spontaneous
  Country: CA (occurrence: CA)
  Receive Date: 20191227
  Receipt Date: 20191227
  Transmission Date: 20200122
  Serious: Yes (Other)
  Sender: FDA-Public Use
  Company Number: CA-PFIZER INC-2019558478

PATIENT
  Age: 69 Year
  Sex: Female

DRUGS (5)
  1. FAMOTIDINE TEVA [Concomitant]
     Active Substance: FAMOTIDINE
     Dosage: UNK
     Route: 048
     Dates: start: 2016
  2. MEZAVANT [Concomitant]
     Active Substance: MESALAMINE
     Dosage: UNK
     Route: 048
     Dates: start: 2016
  3. SALAZOPYRIN [Suspect]
     Active Substance: SULFASALAZINE
     Dosage: UNK
     Dates: start: 2016
  4. CALCIUM [Concomitant]
     Active Substance: CALCIUM
     Dosage: UNK
     Route: 048
     Dates: start: 2016
  5. ROSUVASTATIN. [Concomitant]
     Active Substance: ROSUVASTATIN
     Dosage: UNK
     Route: 048
     Dates: start: 2016

REACTIONS (7)
  - Condition aggravated [Unknown]
  - Faeces soft [Unknown]
  - Rectal haemorrhage [Unknown]
  - Proctalgia [Unknown]
  - Vaginal fistula [Unknown]
  - Crohn^s disease [Unknown]
  - Anal fistula [Unknown]

NARRATIVE: CASE EVENT DATE: 201909
